FAERS Safety Report 12598504 (Version 1)
Quarter: 2016Q3

REPORT INFORMATION
  Report Type: Spontaneous
  Country: None (occurrence: None)
  Receive Date: 20160726
  Receipt Date: 20160726
  Transmission Date: 20161109
  Serious: No
  Sender: FDA-Public Use
  Company Number: None

PATIENT
  Age: 47 Year
  Sex: Female
  Weight: 84.82 kg

DRUGS (1)
  1. REGLAN [Suspect]
     Active Substance: METOCLOPRAMIDE HYDROCHLORIDE
     Indication: NAUSEA
     Dosage: 1 TABLET(S) AS NEEDED TAKEN BY MOUTH
     Route: 048

REACTIONS (4)
  - Musculoskeletal stiffness [None]
  - Tremor [None]
  - Gait disturbance [None]
  - Dystonia [None]

NARRATIVE: CASE EVENT DATE: 20160703
